FAERS Safety Report 7821343-5 (Version None)
Quarter: 2011Q4

REPORT INFORMATION
  Report Type: 
  Country: None (occurrence: None)
  Receive Date: 20111018
  Receipt Date: 20101117
  Transmission Date: 20120403
  Serious: No
  Sender: FDA-Public Use
  Company Number: US-ASTRAZENECA-2010SE54952

PATIENT
  Sex: Female

DRUGS (10)
  1. VENTOLIN [Concomitant]
     Indication: ASTHMA
     Route: 065
  2. LORTAB [Concomitant]
     Route: 065
  3. VITAMIN B-12 [Concomitant]
     Route: 065
  4. LOUVASTATIN [Concomitant]
     Route: 065
  5. LISINOPRIL [Concomitant]
     Route: 048
  6. EFFEXOR [Concomitant]
     Route: 065
  7. SYMBICORT [Suspect]
     Indication: ASTHMA
     Dosage: 160 UG BID
     Route: 055
  8. HYDROCHLOROTHIAZIDE [Concomitant]
     Route: 065
  9. DIAZEPAM [Concomitant]
     Route: 065
  10. OXYBUTYNIN [Concomitant]
     Route: 065

REACTIONS (2)
  - DRUG DOSE OMISSION [None]
  - DYSPNOEA [None]
